FAERS Safety Report 11392199 (Version 1)
Quarter: 2015Q3

REPORT INFORMATION
  Report Type: Spontaneous
  Country: AU (occurrence: AU)
  Receive Date: 20150818
  Receipt Date: 20150818
  Transmission Date: 20151125
  Serious: Yes (Other)
  Sender: FDA-Public Use
  Company Number: AU-PFIZER INC-2015272644

PATIENT
  Age: 89 Year
  Sex: Female

DRUGS (3)
  1. ATACAND [Concomitant]
     Active Substance: CANDESARTAN CILEXETIL
     Dosage: 32 MG, DAILY
  2. SOMAC [Suspect]
     Active Substance: PANTOPRAZOLE SODIUM
     Indication: GASTRIC DISORDER
     Dosage: 20 MG, DAILY
     Route: 065
  3. TAZAC [Concomitant]
     Dosage: 300 MG, DAILY

REACTIONS (1)
  - Hypertension [Unknown]

NARRATIVE: CASE EVENT DATE: 20150803
